FAERS Safety Report 19409177 (Version 2)
Quarter: 2024Q1

REPORT INFORMATION
  Report Type: Spontaneous
  Country: US (occurrence: US)
  Receive Date: 20210614
  Receipt Date: 20240312
  Transmission Date: 20240410
  Serious: No
  Sender: FDA-Public Use
  Company Number: US-SA-SAC20210609000372

PATIENT
  Sex: Male

DRUGS (5)
  1. DUPIXENT [Suspect]
     Active Substance: DUPILUMAB
     Indication: Asthma
     Dosage: 300 MG, QOW
     Route: 058
  2. CINQAIR [Suspect]
     Active Substance: RESLIZUMAB
     Dosage: UNK
  3. EUCRISA [Concomitant]
     Active Substance: CRISABOROLE
     Dosage: UNK UNK, PRN
  4. DEVICE [Concomitant]
     Active Substance: DEVICE
     Dosage: UNK UNK, PRN
  5. MOMETASONE [Concomitant]
     Active Substance: MOMETASONE

REACTIONS (12)
  - Dry eye [Unknown]
  - Tremor [Unknown]
  - Dry skin [Unknown]
  - Sleep apnoea syndrome [Unknown]
  - Weight increased [Unknown]
  - Heart rate increased [Unknown]
  - Chest discomfort [Unknown]
  - Asthma [Unknown]
  - Dyspnoea [Unknown]
  - Vitamin D deficiency [Unknown]
  - Ear discomfort [Unknown]
  - Product dispensing issue [Unknown]
